FAERS Safety Report 17763686 (Version 1)
Quarter: 2020Q2

REPORT INFORMATION
  Report Type: Spontaneous
  Country: US (occurrence: US)
  Receive Date: 20200510
  Receipt Date: 20200510
  Transmission Date: 20200714
  Serious: No
  Sender: FDA-Public Use
  Company Number: US-ASTRAZENECA-2020SE59646

PATIENT
  Sex: Female
  Weight: 77.1 kg

DRUGS (6)
  1. SYMBICORT [Suspect]
     Active Substance: BUDESONIDE\FORMOTEROL FUMARATE DIHYDRATE
     Indication: COUGH
     Dosage: 80/4.5 MCG TWO PUFFS
     Route: 055
  2. WARFARIN [Concomitant]
     Active Substance: WARFARIN
  3. SYMBICORT [Suspect]
     Active Substance: BUDESONIDE\FORMOTEROL FUMARATE DIHYDRATE
     Indication: COUGH
     Dosage: 160/4.5 MCG TWO PUFFS
     Route: 055
  4. ALLUPURINAL [Concomitant]
  5. SYMBICORT [Suspect]
     Active Substance: BUDESONIDE\FORMOTEROL FUMARATE DIHYDRATE
     Indication: COUGH
     Dosage: 160/4.5 MCG ONE PUFF
     Route: 055
  6. METOPROLOL. [Concomitant]
     Active Substance: METOPROLOL

REACTIONS (5)
  - Dysphonia [Unknown]
  - Body height decreased [Unknown]
  - Incorrect dose administered [Unknown]
  - International normalised ratio increased [Recovering/Resolving]
  - Oral mucosal roughening [Unknown]
